FAERS Safety Report 19200797 (Version 1)
Quarter: 2021Q2

REPORT INFORMATION
  Report Type: Spontaneous
  Country: US (occurrence: US)
  Receive Date: 20210430
  Receipt Date: 20210430
  Transmission Date: 20210717
  Serious: Yes (Death, Hospitalization, Other)
  Sender: FDA-Public Use
  Company Number: US-TARO-2021TAR00413

PATIENT
  Age: 34 Year
  Sex: Female

DRUGS (1)
  1. WARFARIN [Suspect]
     Active Substance: WARFARIN
     Indication: ANTICOAGULANT THERAPY
     Dosage: UNK
     Route: 065

REACTIONS (6)
  - Cardiac arrest [Fatal]
  - Anticoagulation drug level above therapeutic [Unknown]
  - Diabetic ketoacidosis [Unknown]
  - Calciphylaxis [Unknown]
  - Subdural haematoma [Unknown]
  - Acute kidney injury [Unknown]
